FAERS Safety Report 23205803 (Version 2)
Quarter: 2023Q4

REPORT INFORMATION
  Report Type: Spontaneous
  Country: IT (occurrence: IT)
  Receive Date: 20231120
  Receipt Date: 20231129
  Transmission Date: 20240110
  Serious: Yes (Other)
  Sender: FDA-Public Use
  Company Number: None

PATIENT
  Age: 63 Year
  Sex: Male
  Weight: 76 kg

DRUGS (9)
  1. PEMETREXED DISODIUM [Suspect]
     Active Substance: PEMETREXED DISODIUM
     Indication: Product used for unknown indication
     Dosage: 900 MG, DOSAGGIO: 900UNITA DI MISURA: MILLIGRAMMIFREQUENZA SOMMINISTRAZIONE: CICLICAVIA SOMMINISTRAZ
     Route: 042
     Dates: start: 20230704, end: 20230704
  2. CARBOPLATIN [Concomitant]
     Active Substance: CARBOPLATIN
     Indication: Lung neoplasm malignant
     Dosage: 400 MG,DOSAGGIO: 400UNITA DI MISURA: MILLIGRAMMIVIA SOMMINISTRAZIONE: ENDOVENOSA
     Route: 042
     Dates: start: 20230704, end: 20230704
  3. CLOPIDOGREL [Concomitant]
     Active Substance: CLOPIDOGREL BISULFATE
     Indication: Thrombosis prophylaxis
     Dosage: UNK,DOSAGGIO: 75UNITA DI MISURA: MILLIGRAMMIVIA SOMMINISTRAZIONE: ORALE
     Route: 048
  4. GENVOYA [Concomitant]
     Active Substance: COBICISTAT\ELVITEGRAVIR\EMTRICITABINE\TENOFOVIR ALAFENAMIDE FUMARATE
     Dosage: UNK, STRENGTH: 10 MG
     Route: 065
  5. GENVOYA [Concomitant]
     Active Substance: COBICISTAT\ELVITEGRAVIR\EMTRICITABINE\TENOFOVIR ALAFENAMIDE FUMARATE
     Dosage: UNK, STRENGTH: 150 MG
     Route: 065
  6. GENVOYA [Concomitant]
     Active Substance: COBICISTAT\ELVITEGRAVIR\EMTRICITABINE\TENOFOVIR ALAFENAMIDE FUMARATE
     Dosage: UNK, STRENGTH: 200 MG
     Route: 065
  7. GENVOYA [Concomitant]
     Active Substance: COBICISTAT\ELVITEGRAVIR\EMTRICITABINE\TENOFOVIR ALAFENAMIDE FUMARATE
     Indication: HIV infection
     Dosage: UNK,DOSAGGIO: 1UNITA DI MISURA: UNITA POSOLOGICAVIA SOMMINISTRAZIONE: ORALE
     Route: 048
  8. PAROXETINE [Concomitant]
     Active Substance: PAROXETINE
     Indication: Depression
     Dosage: UNK,VIA SOMMINISTRAZIONE: ORALE
     Route: 048
  9. Tamsulosina clorhidrato [Concomitant]
     Indication: Benign prostatic hyperplasia
     Dosage: UNK,VIA SOMMINISTRAZIONE: ORALE
     Route: 048

REACTIONS (2)
  - Pyrexia [Recovered/Resolved]
  - Asthenia [Recovered/Resolved]

NARRATIVE: CASE EVENT DATE: 20230710
